FAERS Safety Report 6804883-7 (Version None)
Quarter: 2010Q2

REPORT INFORMATION
  Report Type: 
  Country: None (occurrence: None)
  Receive Date: 20100628
  Receipt Date: 20070618
  Transmission Date: 20101027
  Serious: No
  Sender: FDA-Public Use
  Company Number: US-PFIZER INC-2007049134

PATIENT
  Sex: Male
  Weight: 95.25 kg

DRUGS (1)
  1. GEODON [Suspect]
     Indication: HALLUCINATION
     Dates: start: 20070501

REACTIONS (2)
  - DRUG INEFFECTIVE [None]
  - MALAISE [None]
